FAERS Safety Report 9608919 (Version 1)
Quarter: 2013Q4

REPORT INFORMATION
  Report Type: Spontaneous
  Country: GB (occurrence: GB)
  Receive Date: 20131009
  Receipt Date: 20131009
  Transmission Date: 20140711
  Serious: Yes (Other)
  Sender: FDA-Public Use
  Company Number: GB-ASTRAZENECA-2013SE72867

PATIENT
  Sex: Female

DRUGS (1)
  1. ANASTROZOLE [Suspect]
     Route: 048

REACTIONS (11)
  - Ear disorder [Unknown]
  - Nasal disorder [Unknown]
  - Panic attack [Unknown]
  - Bone pain [Unknown]
  - Depression [Unknown]
  - Dry mouth [Unknown]
  - Neuralgia [Unknown]
  - Quality of life decreased [Unknown]
  - Myalgia [Unknown]
  - Dysgeusia [Unknown]
  - Fatigue [Unknown]
